FAERS Safety Report 4283850-4 (Version None)
Quarter: 2004Q1

REPORT INFORMATION
  Report Type: 
  Country: None (occurrence: None)
  Receive Date: 20040130
  Receipt Date: 20040120
  Transmission Date: 20041129
  Serious: Yes (Hospitalization)
  Sender: FDA-Public Use
  Company Number: US-JNJFOC-20040103887

PATIENT
  Age: 80 Year
  Sex: Male

DRUGS (11)
  1. INFLIXIMAB (INFLIXIMAB, RECOMBINANT) LYOPHILIZED POWDER [Suspect]
     Indication: RHEUMATOID ARTHRITIS
     Dosage: INTRAVENOUS
     Route: 042
     Dates: start: 20000117
  2. DIGOXIN [Concomitant]
  3. FUROSEMIDE [Concomitant]
  4. HYDROCODONE (HYDROCODONE) TABLETS [Concomitant]
  5. METHOTREXATE [Concomitant]
  6. SPIRONOLACTONE [Concomitant]
  7. TYLENOL [Concomitant]
  8. WARFARIN SODIUM [Concomitant]
  9. VITAMIN E [Concomitant]
  10. MULTIVITAMIN (MULTIVITAMINS) [Concomitant]
  11. POTASSIUM (POTASSIUM) [Concomitant]

REACTIONS (8)
  - ATRIAL FIBRILLATION [None]
  - DYSPNOEA [None]
  - ELECTROCARDIOGRAM ST-T CHANGE [None]
  - HAEMOTHORAX [None]
  - LUNG DISORDER [None]
  - PLEURAL EFFUSION [None]
  - PLEURAL FIBROSIS [None]
  - PLEURISY [None]
